FAERS Safety Report 9209017 (Version 2)
Quarter: 2013Q2

REPORT INFORMATION
  Report Type: Spontaneous
  Country: GB (occurrence: GB)
  Receive Date: 20130404
  Receipt Date: 20130406
  Transmission Date: 20140414
  Serious: Yes (Other)
  Sender: FDA-Public Use
  Company Number: GB-ACCORD-017033

PATIENT
  Age: 57 Year
  Sex: Female
  Weight: 91.6 kg

DRUGS (8)
  1. DOCETAXEL [Suspect]
     Indication: BREAST CANCER
     Route: 042
     Dates: start: 20121226
  2. GRANISETRON [Concomitant]
     Indication: PREMEDICATION
     Route: 048
     Dates: start: 20121226, end: 20121228
  3. DOMPERIDONE [Concomitant]
     Dosage: THREE TIMES DAILY, AS REQUIRED.
     Route: 048
     Dates: start: 20121226
  4. PEGFILGRASTIM [Concomitant]
     Route: 058
     Dates: start: 20121227
  5. DEXAMETHASONE [Concomitant]
     Indication: PREMEDICATION
     Route: 048
     Dates: start: 20121225, end: 20121227
  6. FLUOROURACIL [Concomitant]
     Indication: CHEMOTHERAPY
     Dosage: THREE CYCLES OF F.E.C CHEMOTHERAPY AT THREE WEEKLY INTERVALS.
     Dates: start: 20121024
  7. EPIRUBICIN [Concomitant]
     Indication: CHEMOTHERAPY
     Dosage: THREE CYCLES OF F.E.C CHEMOTHERAPY AT THREE WEEKLY INTERVALS.
     Dates: start: 20121024
  8. CYCLOPHOSPHAMIDE [Concomitant]
     Indication: CHEMOTHERAPY
     Dosage: THREE CYCLES OF F.E.C CHEMOTHERAPY AT THREE WEEKLY INTERVALS.
     Dates: start: 20121024

REACTIONS (3)
  - Skin reaction [Recovering/Resolving]
  - Blister [Recovering/Resolving]
  - Catheter site related reaction [Recovering/Resolving]
